FAERS Safety Report 8859845 (Version 1)
Quarter: 2012Q4

REPORT INFORMATION
  Report Type: 
  Country: US (occurrence: US)
  Receive Date: 20121025
  Receipt Date: 20121025
  Transmission Date: 20130627
  Serious: Yes (Other)
  Sender: FDA-Public Use
  Company Number: US-ABBOTT-11P-163-0867688-00

PATIENT

DRUGS (1)
  1. LUPRON DEPOT [Suspect]
     Indication: ENDOMETRIOSIS

REACTIONS (5)
  - Pituitary tumour [Unknown]
  - Bone density decreased [Unknown]
  - Hypothalamo-pituitary disorder [Unknown]
  - Nervous system disorder [Unknown]
  - Injury [Unknown]
